FAERS Safety Report 8156511-9 (Version None)
Quarter: 2012Q1

REPORT INFORMATION
  Report Type: 
  Country: None (occurrence: None)
  Receive Date: 20120216
  Receipt Date: 20120216
  Transmission Date: 20120608
  Serious: Yes (Hospitalization, Other)
  Sender: FDA-Public Use
  Company Number: CPI 3110

PATIENT
  Age: 12 Year
  Sex: Female
  Weight: 64 kg

DRUGS (5)
  1. ACETADOTE [Suspect]
     Indication: OVERDOSE
     Dosage: 150MG/KG 30M; 12.5FOR 4H 6.25 MG/KG QH FOR 40 H
     Dates: start: 20110101
  2. CITALOPRAM HYDROBROMIDE [Concomitant]
  3. DEXTROAMPHETAMINE [Concomitant]
  4. RISPERIDONE [Concomitant]
  5. DIPHENHYDRAMINE HCL [Concomitant]

REACTIONS (3)
  - TRANSAMINASES INCREASED [None]
  - INTERNATIONAL NORMALISED RATIO INCREASED [None]
  - ENCEPHALOPATHY [None]
